FAERS Safety Report 10273754 (Version 1)
Quarter: 2014Q2

REPORT INFORMATION
  Report Type: Spontaneous
  Country: FR (occurrence: None)
  Receive Date: 20140630
  Receipt Date: 20140630
  Transmission Date: 20141212
  Serious: Yes (Hospitalization)
  Sender: FDA-Public Use
  Company Number: 2405089

PATIENT
  Age: 47 Year
  Sex: Female

DRUGS (5)
  1. VINCRISTINE SULFATE [Suspect]
     Indication: CHEMOTHERAPY
     Dosage: 1.4 MG/M 2 MILLIGRAM(S)/SQ. METER, (UNKNOWN), INTRAVENOUS (NOT OTHERWISE SPECIFIED)?
     Route: 042
     Dates: start: 20101001, end: 20101115
  2. RITUXIMAB [Suspect]
     Indication: PRODUCT USED FOR UNKNOWN INDICATION
     Dosage: 375 MG/M 2 MILLIGRAM(S)/SQ. METER, (UNKNOWN), INTRAVENOUS (NOT OTHERWISE SPECIFIED)
     Route: 042
     Dates: start: 20101028
  3. CYCLOPHOSPHAMIDE [Concomitant]
  4. DOXORUBICIN EBEWE [Concomitant]
  5. PREDNISONE [Concomitant]

REACTIONS (4)
  - Acute polyneuropathy [None]
  - Neurotoxicity [None]
  - Hypoaesthesia [None]
  - Hyporeflexia [None]
